FAERS Safety Report 8197266-1 (Version None)
Quarter: 2012Q1

REPORT INFORMATION
  Report Type: 
  Country: None (occurrence: None)
  Receive Date: 20120309
  Receipt Date: 20120306
  Transmission Date: 20120608
  Serious: Yes (Hospitalization, Other)
  Sender: FDA-Public Use
  Company Number: US-PFIZER INC-2012059925

PATIENT

DRUGS (4)
  1. POLYGAM S/D [Suspect]
     Dosage: UNK
  2. COUMADIN [Suspect]
     Dosage: UNK
  3. DILANTIN-125 [Suspect]
     Dosage: UNK
  4. NORDITROPIN [Suspect]
     Dosage: UNK

REACTIONS (3)
  - ANTICONVULSANT DRUG LEVEL ABNORMAL [None]
  - SOMNOLENCE [None]
  - CONVULSION [None]
